FAERS Safety Report 4795807-5 (Version None)
Quarter: 2005Q3

REPORT INFORMATION
  Report Type: 
  Country: None (occurrence: None)
  Receive Date: 20050916
  Receipt Date: 20041019
  Transmission Date: 20060218
  Serious: Yes (Other)
  Sender: FDA-Public Use
  Company Number: US-JNJFOC-20040502507

PATIENT
  Age: 6 Year
  Sex: Male
  Weight: 20.8655 kg

DRUGS (2)
  1. TOPAMAX [Suspect]
     Indication: CONVULSION
     Dosage: 30MG IN THE AM AND 45 MG IN THE PM
     Dates: start: 20000501, end: 20040501
  2. TEGRETOL [Concomitant]

REACTIONS (4)
  - EYE PAIN [None]
  - INTRAOCULAR PRESSURE INCREASED [None]
  - LACRIMATION INCREASED [None]
  - MYOPIA [None]
